FAERS Safety Report 9157603 (Version 1)
Quarter: 2013Q1

REPORT INFORMATION
  Report Type: Spontaneous
  Country: CA (occurrence: None)
  Receive Date: 20130215
  Receipt Date: 20130215
  Transmission Date: 20140127
  Serious: Yes (Other)
  Sender: FDA-Public Use
  Company Number: 2013AP002611

PATIENT
  Age: 82 Year
  Sex: Female

DRUGS (7)
  1. CALCITONIN [Suspect]
     Route: 045
  2. CELEBREX (CELECOXIB) [Concomitant]
  3. HYDROCHLOROTHIAZIDE (HYDROCHLOROTHIAZIDE) [Concomitant]
  4. CILAZAPRIL (CILAZAPRIL) [Concomitant]
  5. METFORMIN (METFORMIN) [Concomitant]
  6. METOPROLOL (METOPROLOL) [Concomitant]
  7. RANITIDINE (RANITIDINE) [Concomitant]

REACTIONS (2)
  - Arrhythmia [None]
  - Blood glucose increased [None]
